FAERS Safety Report 24845480 (Version 1)
Quarter: 2025Q1

REPORT INFORMATION
  Report Type: Spontaneous
  Country: ES (occurrence: ES)
  Receive Date: 20250115
  Receipt Date: 20250115
  Transmission Date: 20250408
  Serious: Yes (Disabling, Other)
  Sender: PFIZER
  Company Number: None

PATIENT
  Age: 56 Year
  Sex: Male
  Weight: 90 kg

DRUGS (4)
  1. PRISTIQ EXTENDED-RELEASE [Suspect]
     Active Substance: DESVENLAFAXINE SUCCINATE
     Indication: Adjustment disorder with depressed mood
     Dosage: 50 MG, 1X/DAY
     Route: 048
     Dates: start: 20240821, end: 202501
  2. LEVOTHYROXINE SODIUM [Concomitant]
     Active Substance: LEVOTHYROXINE SODIUM
     Indication: Hypothyroidism
     Dates: start: 201701
  3. FAMOTIDINE [Concomitant]
     Active Substance: FAMOTIDINE
     Indication: Barrett^s oesophagus
     Route: 048
     Dates: start: 20230601
  4. LORAZEPAM [Concomitant]
     Active Substance: LORAZEPAM
     Route: 048
     Dates: start: 20240812

REACTIONS (2)
  - Vision blurred [Not Recovered/Not Resolved]
  - Retinitis pigmentosa [Unknown]

NARRATIVE: CASE EVENT DATE: 20240821
